FAERS Safety Report 10480369 (Version 1)
Quarter: 2014Q3

REPORT INFORMATION
  Report Type: Spontaneous
  Country: US (occurrence: None)
  Receive Date: 20140925
  Receipt Date: 20140925
  Transmission Date: 20150326
  Serious: Yes (Other)
  Sender: FDA-Public Use
  Company Number: 2014HINLIT0847

PATIENT
  Age: 44 Year
  Sex: Male

DRUGS (5)
  1. DIDANOSINE. [Suspect]
     Active Substance: DIDANOSINE
     Indication: HIV INFECTION
  2. ABACAVIR [Suspect]
     Active Substance: ABACAVIR
     Indication: HIV INFECTION
  3. FLUTICASONE PROPIONATE (FLUTICASONE PROPIONATE) (FLUTICASONE PROPIONATE) [Suspect]
     Active Substance: FLUTICASONE PROPIONATE
     Indication: PRODUCT USED FOR UNKNOWN INDICATION
     Dosage: 2000, UNKNOWN
  4. MONTELUKAST [Concomitant]
     Active Substance: MONTELUKAST SODIUM
  5. LOPINAVIR+ RITONAVIR [Suspect]
     Active Substance: LOPINAVIR\RITONAVIR
     Indication: HIV INFECTION

REACTIONS (2)
  - Cushing^s syndrome [None]
  - Drug interaction [None]
